FAERS Safety Report 9123232 (Version 2)
Quarter: 2013Q2

REPORT INFORMATION
  Report Type: Spontaneous
  Country: US (occurrence: US)
  Receive Date: 20130115
  Receipt Date: 20130405
  Transmission Date: 20140414
  Serious: Yes (Other)
  Sender: FDA-Public Use
  Company Number: US-BAYER-2013-004100

PATIENT
  Age: 27 Year
  Sex: Female
  Weight: 47.17 kg

DRUGS (1)
  1. MIRENA [Suspect]
     Dosage: 20 MCG/24HR, CONT
     Route: 015
     Dates: start: 20110119

REACTIONS (2)
  - Device dislocation [Not Recovered/Not Resolved]
  - Pain [None]
